FAERS Safety Report 17464649 (Version 1)
Quarter: 2020Q1

REPORT INFORMATION
  Report Type: Spontaneous
  Country: IT (occurrence: IT)
  Receive Date: 20200226
  Receipt Date: 20200226
  Transmission Date: 20200409
  Serious: Yes (Other)
  Sender: FDA-Public Use
  Company Number: NVSC2020IT046668

PATIENT
  Age: 72 Year
  Sex: Female

DRUGS (2)
  1. VOLTFAST [Suspect]
     Active Substance: DICLOFENAC
     Indication: OROPHARYNGEAL PAIN
     Dosage: 1 DF TOTAL
     Route: 048
     Dates: start: 20191023, end: 20191023
  2. ATORVASTATIN [Concomitant]
     Active Substance: ATORVASTATIN
     Indication: DYSLIPIDAEMIA
     Route: 065

REACTIONS (4)
  - Malaise [Recovering/Resolving]
  - Paraesthesia [Recovering/Resolving]
  - Dyspnoea [Recovering/Resolving]
  - Tremor [Recovering/Resolving]

NARRATIVE: CASE EVENT DATE: 20191023
